FAERS Safety Report 6868262-9 (Version None)
Quarter: 2010Q3

REPORT INFORMATION
  Report Type: 
  Country: None (occurrence: None)
  Receive Date: 20100722
  Receipt Date: 20080702
  Transmission Date: 20110219
  Serious: No
  Sender: FDA-Public Use
  Company Number: US-PFIZER INC-2008041221

PATIENT
  Sex: Male
  Weight: 61.8 kg

DRUGS (3)
  1. CHANTIX [Suspect]
     Indication: SMOKING CESSATION THERAPY
     Dates: start: 20080401
  2. WARFARIN SODIUM [Concomitant]
  3. ACETYLSALICYLIC ACID [Concomitant]

REACTIONS (4)
  - ABNORMAL BEHAVIOUR [None]
  - AGITATION [None]
  - DEPRESSION [None]
  - SCREAMING [None]
